FAERS Safety Report 6866938-0 (Version None)
Quarter: 2010Q3

REPORT INFORMATION
  Report Type: 
  Country: None (occurrence: None)
  Receive Date: 20100722
  Receipt Date: 20100713
  Transmission Date: 20110219
  Serious: Yes (Other)
  Sender: FDA-Public Use
  Company Number: GXKR2010TW07747

PATIENT
  Age: 86 Year
  Sex: Male

DRUGS (6)
  1. ACETYLSALICYLIC ACID SRT [Suspect]
     Indication: ACUTE MYOCARDIAL INFARCTION
     Dosage: 300 MG, (LOADING DOSE)
     Route: 065
  2. ACETYLSALICYLIC ACID SRT [Suspect]
     Dosage: 100 MG/DAY
     Route: 065
  3. CLOPIDOGREL BISULFATE [Suspect]
     Indication: ACUTE MYOCARDIAL INFARCTION
     Dosage: 300 MG, (LOADING DOSE)
     Route: 065
  4. CLOPIDOGREL BISULFATE [Suspect]
     Dosage: 75 MG, QD
     Route: 065
  5. HEPARIN [Suspect]
     Indication: ACUTE MYOCARDIAL INFARCTION
     Dosage: 5000 U, (LOADING DOSE)
     Route: 065
  6. HEPARIN [Suspect]
     Dosage: 600 UNITS EVERY HOUR
     Route: 065

REACTIONS (1)
  - HAEMATOMA [None]
